FAERS Safety Report 7228291-2 (Version None)
Quarter: 2011Q1

REPORT INFORMATION
  Report Type: 
  Country: None (occurrence: None)
  Receive Date: 20110114
  Receipt Date: 20110112
  Transmission Date: 20110831
  Serious: Yes (Hospitalization, Other)
  Sender: FDA-Public Use
  Company Number: JP-PFIZER INC-2010174049

PATIENT
  Age: 75 Year
  Sex: Male

DRUGS (9)
  1. WARFARIN [Concomitant]
     Dosage: UNK
     Route: 048
     Dates: start: 20101212
  2. CARNACULIN [Concomitant]
     Indication: HYPERTENSION
     Dosage: 50 MG, 3X/DAY
     Route: 048
  3. URIEF [Concomitant]
     Indication: BENIGN PROSTATIC HYPERPLASIA
     Dosage: 4 MG, 2X/DAY
     Route: 048
  4. GOSHAJINKIGAN [Concomitant]
     Indication: DYSURIA
     Dosage: 2.5 G, 3X/DAY
     Route: 048
  5. MUCOSTA [Concomitant]
     Indication: GASTRITIS
     Dosage: 100 MG, 2X/DAY
     Route: 048
  6. ZOLOFT [Suspect]
     Dosage: 100 MG/DAY
     Route: 048
     Dates: start: 20101211
  7. TAKEPRON [Concomitant]
     Indication: GASTRIC ULCER
     Dosage: 15 MG, 1X/DAY
     Route: 048
  8. ZOLOFT [Suspect]
     Indication: DEPRESSION
     Dosage: 25 MG, 2X/DAY
     Route: 048
     Dates: start: 20101208
  9. ANAFRANIL [Concomitant]
     Indication: DEPRESSION
     Dosage: UNK
     Route: 042
     Dates: start: 20101203

REACTIONS (1)
  - PULMONARY EMBOLISM [None]
